FAERS Safety Report 13739170 (Version 1)
Quarter: 2017Q3

REPORT INFORMATION
  Report Type: Spontaneous
  Country: US (occurrence: US)
  Receive Date: 20170710
  Receipt Date: 20170710
  Transmission Date: 20171127
  Serious: Yes (Life-Threatening, Hospitalization, Other)
  Sender: FDA-Public Use
  Company Number: US-SAOL THERAPEUTICS-2017SAO00446

PATIENT
  Age: 64 Year
  Sex: Female
  Weight: 105.8 kg

DRUGS (14)
  1. COMPOUNDED BACLOFEN [Suspect]
     Active Substance: BACLOFEN
     Indication: PAIN
     Dosage: 105.21 ?G, \DAY
     Route: 037
  2. LASIX [Concomitant]
     Active Substance: FUROSEMIDE
     Dosage: 20 MG, EVERY 48 HOURS
  3. BUPIVACAINE. [Suspect]
     Active Substance: BUPIVACAINE
     Dosage: 7.019 MG, \DAY
     Route: 037
  4. CYMBALTA [Concomitant]
     Active Substance: DULOXETINE HYDROCHLORIDE
     Dosage: 30 MG, 1X/DAY
  5. LASIX [Concomitant]
     Active Substance: FUROSEMIDE
     Dosage: 20 MG 1X \DAY
  6. ROBAXIN [Concomitant]
     Active Substance: METHOCARBAMOL
     Dosage: 500 MG, AS NEEDED
     Route: 048
  7. MORPHINE [Suspect]
     Active Substance: MORPHINE
  8. TOPIRAMATE. [Concomitant]
     Active Substance: TOPIRAMATE
     Dosage: 100 MG, 2X/DAY
     Route: 048
  9. KLOR-CON [Concomitant]
     Active Substance: POTASSIUM CHLORIDE
     Dosage: 1 TABLETS, 1X/DAY
     Route: 048
  10. COMPOUNDED BACLOFEN [Suspect]
     Active Substance: BACLOFEN
     Indication: POST LAMINECTOMY SYNDROME
  11. CLONIDINE. [Suspect]
     Active Substance: CLONIDINE
     Dosage: 351 ?G, \DAY
     Route: 037
  12. DULEXETINE DELAYED RELEASE [Concomitant]
     Dosage: 1 CAPSULES, 1X/DAY
     Route: 048
  13. DILAUDID [Suspect]
     Active Substance: HYDROMORPHONE HYDROCHLORIDE
     Dosage: 1.439 MG, \DAY
     Route: 037
  14. DILAUDID [Concomitant]
     Active Substance: HYDROMORPHONE HYDROCHLORIDE
     Dosage: UNK, AS NEEDED
     Route: 048

REACTIONS (13)
  - Loss of consciousness [Unknown]
  - Overdose [Unknown]
  - Confusional state [Unknown]
  - Blood alkaline phosphatase increased [Unknown]
  - Somnolence [Unknown]
  - Blood pressure increased [Unknown]
  - Off label use [Unknown]
  - Restlessness [Unknown]
  - Paraesthesia [Unknown]
  - Apnoea [Unknown]
  - Pruritus [Unknown]
  - Abdominal pain [Unknown]
  - Burning sensation [Unknown]

NARRATIVE: CASE EVENT DATE: 20170301
